FAERS Safety Report 19284192 (Version 12)
Quarter: 2021Q3

REPORT INFORMATION
  Report Type: Spontaneous
  Country: GB (occurrence: GB)
  Receive Date: 20210521
  Receipt Date: 20210831
  Transmission Date: 20211014
  Serious: Yes (Other)
  Sender: FDA-Public Use
  Company Number: GB-TILLOMEDPR-2018-EPL-002884

PATIENT
  Age: 73 Year
  Sex: Female
  Weight: 50.2 kg

DRUGS (48)
  1. MELPHALAN. [Suspect]
     Active Substance: MELPHALAN
     Dosage: 14 MILLIGRAM, 1 CYCLE
     Route: 065
  2. ALLOPURINOL. [Suspect]
     Active Substance: ALLOPURINOL
     Dosage: 30 MILLIGRAM, DAILY MEDICATION ERROR, MISUSE, ABUSE, OFF LABEL USE
     Dates: start: 20171104, end: 20171120
  3. VELCADE [Suspect]
     Active Substance: BORTEZOMIB
     Dosage: 1.3 MG/M2, 1 CYCLE (INJECTION)
     Route: 058
     Dates: start: 20171110, end: 20171110
  4. MELPHALAN. [Suspect]
     Active Substance: MELPHALAN
     Dosage: 14 MILLIGRAM
     Dates: start: 20171103, end: 20171106
  5. ALLOPURINOL. [Suspect]
     Active Substance: ALLOPURINOL
     Indication: PRODUCT USED FOR UNKNOWN INDICATION
     Dosage: 300 MILLIGRAM DAILY;MEDICATION ERROR, MISUSE, ABUSE, OFF LABEL USE
     Route: 065
     Dates: start: 20171104
  6. VELCADE [Suspect]
     Active Substance: BORTEZOMIB
     Dosage: 1.8 MILLIGRAM
     Route: 058
     Dates: start: 20171110, end: 20171114
  7. FRESENIUS KABI SODIUM CHLORIDE BP [Suspect]
     Active Substance: SODIUM CHLORIDE
     Dosage: UNK
     Route: 041
     Dates: start: 20171106, end: 20171106
  8. FRESENIUS KABI SODIUM CHLORIDE BP [Suspect]
     Active Substance: SODIUM CHLORIDE
     Dosage: UNK
     Dates: start: 20171110, end: 20171110
  9. BENDROFLUMETHIAZIDE [Suspect]
     Active Substance: BENDROFLUMETHIAZIDE
     Dosage: 2 MILLIGRAM
     Dates: start: 20171107
  10. BENDROFLUMETHIAZIDE [Suspect]
     Active Substance: BENDROFLUMETHIAZIDE
     Dosage: 2 MILLIGRAM
     Dates: start: 20171110, end: 20171114
  11. METOCLOPRAMIDE. [Suspect]
     Active Substance: METOCLOPRAMIDE
     Indication: PRODUCT USED FOR UNKNOWN INDICATION
     Dosage: 10 MILLIGRAM, AS NECESSARYMEDICATION ERROR, MISUSE, ABUSE, OFF LABEL USE
     Route: 065
  12. ALLOPURINOL. [Suspect]
     Active Substance: ALLOPURINOL
     Dosage: UNK
  13. VELCADE [Suspect]
     Active Substance: BORTEZOMIB
     Indication: PLASMA CELL LEUKAEMIA
     Dosage: 1.8 MILLIGRAM MEDICATION ERROR, MISUSE, ABUSE, OFF LABEL USE
     Route: 058
     Dates: start: 20171103, end: 20171103
  14. FENTANYL. [Suspect]
     Active Substance: FENTANYL
     Indication: PRODUCT USED FOR UNKNOWN INDICATION
     Dosage: 12 MILLIGRAM
     Route: 062
     Dates: start: 20171108
  15. MELPHALAN. [Suspect]
     Active Substance: MELPHALAN
     Dosage: UNK
     Route: 065
     Dates: start: 20171103, end: 20171103
  16. MELPHALAN. [Suspect]
     Active Substance: MELPHALAN
     Dosage: 1 CYCLE
     Dates: start: 20171110
  17. ALLOPURINOL. [Suspect]
     Active Substance: ALLOPURINOL
     Dosage: DOSAGE FORM: UNSPECIFIED
     Route: 065
     Dates: end: 20171120
  18. ALLOPURINOL. [Suspect]
     Active Substance: ALLOPURINOL
     Dosage: 300 MILLIGRAM (THERAPY IS ONGOING)
     Dates: start: 20171120
  19. FRESENIUS KABI SODIUM CHLORIDE BP [Suspect]
     Active Substance: SODIUM CHLORIDE
     Dosage: SOLUTION
     Dates: start: 20171103, end: 20171103
  20. PREDNISONE. [Suspect]
     Active Substance: PREDNISONE
     Dosage: UNK, 1 CYCLE
  21. SERTRALINE [Suspect]
     Active Substance: SERTRALINE HYDROCHLORIDE
     Indication: PRODUCT USED FOR UNKNOWN INDICATION
     Dosage: 50 MILLIGRAM, ONCE A DAY, MEDICATION ERROR, MISUSE, ABUSE, OFF LABEL USE
  22. BENDROFLUMETHIAZIDE [Suspect]
     Active Substance: BENDROFLUMETHIAZIDE
     Indication: PRODUCT USED FOR UNKNOWN INDICATION
     Dosage: 2.5 MILLIGRAM, ONCE A DAY
     Route: 065
  23. BENDROFLUMETHIAZIDE [Suspect]
     Active Substance: BENDROFLUMETHIAZIDE
     Dosage: 1.8 MG/M2 Q_CYCLE / 1.3 MG/M2 DAILY /1.8UNK
  24. MELPHALAN. [Suspect]
     Active Substance: MELPHALAN
     Dosage: UNK
     Dates: start: 20171106, end: 20171106
  25. DEXAMETHASONE. [Suspect]
     Active Substance: DEXAMETHASONE
     Indication: PRODUCT USED FOR UNKNOWN INDICATION
     Dosage: 20 MILLIGRAM DAILY;MEDICATION ERROR, MISUSE, ABUSE, OFF LABEL USE
     Route: 065
     Dates: start: 20171102, end: 20171106
  26. DUROGESIC DTRANS [Suspect]
     Active Substance: FENTANYL
     Indication: PRODUCT USED FOR UNKNOWN INDICATION
     Dosage: 12 MICROGRAM
     Route: 065
     Dates: start: 20171108
  27. VELCADE [Suspect]
     Active Substance: BORTEZOMIB
     Dosage: 1.3 MG/M2, 1 CYCLE
     Route: 058
     Dates: start: 20171106, end: 20171106
  28. VELCADE [Suspect]
     Active Substance: BORTEZOMIB
     Dosage: LYOPHILIZED POWDER
     Route: 058
  29. VELCADE [Suspect]
     Active Substance: BORTEZOMIB
     Dosage: 1.8 MILLIGRAM
     Route: 058
     Dates: start: 20171107, end: 201711
  30. PREDNISONE. [Suspect]
     Active Substance: PREDNISONE
     Indication: PLASMA CELL LEUKAEMIA
     Dosage: 70 MILLIGRAM, ONCE A DAY
     Dates: start: 20171103, end: 20171103
  31. RAMIPRIL. [Suspect]
     Active Substance: RAMIPRIL
     Indication: PRODUCT USED FOR UNKNOWN INDICATION
     Dosage: 10 MILLIGRAM, ONCE A DAY, DOSAGE FORM: UNSPECIFIED, EVERY MORNING MEDICATION ERROR, MISUSE, ABUSE, O
  32. MELPHALAN. [Suspect]
     Active Substance: MELPHALAN
     Dosage: UNK
     Dates: start: 20171110, end: 20171114
  33. PREDNISONE. [Suspect]
     Active Substance: PREDNISONE
     Dosage: 70 MILLIGRAM, QD, 1 CYCLE
     Dates: start: 20171106, end: 20171106
  34. PREDNISONE. [Suspect]
     Active Substance: PREDNISONE
     Dosage: 70 MILLIGRAM
     Dates: start: 20171103, end: 20171106
  35. OMEPRAZOLE. [Suspect]
     Active Substance: OMEPRAZOLE
     Indication: PRODUCT USED FOR UNKNOWN INDICATION
     Dosage: 20 MILLIGRAM, ONCE A DAY, UNSPECIFIED, EVERY MORNING, MEDICATION ERROR, MISUSE, ABUSE, OFF LABEL USE
     Route: 065
  36. FENTANYL CITRATE. [Suspect]
     Active Substance: FENTANYL CITRATE
     Indication: PRODUCT USED FOR UNKNOWN INDICATION
     Dosage: 12 MICROGRAM (INHALATION)
     Route: 055
     Dates: start: 20171108
  37. MELPHALAN. [Suspect]
     Active Substance: MELPHALAN
     Indication: PLASMA CELL LEUKAEMIA
     Dosage: 14 MILLIGRAM, 1 CYCLE
     Route: 065
     Dates: start: 20171107, end: 20171110
  38. MELPHALAN. [Suspect]
     Active Substance: MELPHALAN
     Dosage: UNK
     Dates: start: 201711, end: 20171107
  39. ALLOPURINOL. [Suspect]
     Active Substance: ALLOPURINOL
     Dosage: 300 UNK
     Dates: start: 20181120
  40. FRESENIUS KABI SODIUM CHLORIDE BP [Suspect]
     Active Substance: SODIUM CHLORIDE
     Dosage: MEDICATION ERROR, MISUSE, ABUSE, OFF LABEL USE
     Dates: start: 20171107, end: 201711
  41. FENTANYL. [Suspect]
     Active Substance: FENTANYL
     Dosage: 12 UG, Q1HR
     Route: 062
     Dates: start: 20171108
  42. MELPHALAN. [Suspect]
     Active Substance: MELPHALAN
     Dosage: UNK
     Dates: start: 20171110, end: 20171110
  43. ALLOPURINOL. [Suspect]
     Active Substance: ALLOPURINOL
     Dosage: 300 MILLIGRAM DAILY;
     Route: 065
     Dates: start: 20171104
  44. VELCADE [Suspect]
     Active Substance: BORTEZOMIB
     Dosage: 1.3 MG/M2, 1 CYCLE
     Dates: start: 20171110, end: 20171114
  45. FRESENIUS KABI SODIUM CHLORIDE BP [Suspect]
     Active Substance: SODIUM CHLORIDE
     Indication: MEDICATION DILUTION
     Dosage: UNK
     Route: 041
     Dates: start: 20171110, end: 20171114
  46. FRESENIUS KABI SODIUM CHLORIDE BP [Suspect]
     Active Substance: SODIUM CHLORIDE
     Dosage: UNK
     Route: 041
     Dates: start: 20171103, end: 20171106
  47. BENDROFLUMETHIAZIDE [Suspect]
     Active Substance: BENDROFLUMETHIAZIDE
     Dosage: 2 MILLIGRAM
     Dates: start: 20171103, end: 20171103
  48. BENDROFLUMETHIAZIDE [Suspect]
     Active Substance: BENDROFLUMETHIAZIDE
     Dosage: 3 MILLIGRAM

REACTIONS (13)
  - Paranoia [Recovered/Resolved]
  - Product use in unapproved indication [Unknown]
  - Intentional product misuse [Unknown]
  - Agitation [Recovered/Resolved]
  - Disturbance in social behaviour [Recovered/Resolved]
  - Confusional state [Recovered/Resolved]
  - Hallucination [Recovered/Resolved]
  - Drug abuse [Unknown]
  - Disorientation [Recovered/Resolved]
  - Emotional distress [Not Recovered/Not Resolved]
  - Medication error [Unknown]
  - Off label use [Unknown]
  - Abnormal behaviour [Recovered/Resolved]

NARRATIVE: CASE EVENT DATE: 20170607
